FAERS Safety Report 15360917 (Version 1)
Quarter: 2018Q4

REPORT INFORMATION
  Report Type: Spontaneous
  Country: NO (occurrence: NO)
  Receive Date: 20180907
  Receipt Date: 20180907
  Transmission Date: 20190204
  Serious: Yes (Other)
  Sender: FDA-Public Use
  Company Number: NO-TERSERA THERAPEUTICS LLC-TSR2018002037

PATIENT

DRUGS (1)
  1. ZOLADEX [Suspect]
     Active Substance: GOSERELIN ACETATE
     Indication: PRODUCT USED FOR UNKNOWN INDICATION
     Dosage: 10.8MG UNKNOWN
     Route: 058

REACTIONS (2)
  - Malignant neoplasm progression [Unknown]
  - Product storage error [Unknown]
